FAERS Safety Report 5336652-1 (Version None)
Quarter: 2007Q2

REPORT INFORMATION
  Report Type: 
  Country: None (occurrence: None)
  Receive Date: 20070524
  Receipt Date: 20070524
  Transmission Date: 20071010
  Serious: Yes (Life-Threatening)
  Sender: FDA-Public Use
  Company Number: None

PATIENT
  Sex: Female
  Weight: 66.2252 kg

DRUGS (1)
  1. ZETIA [Suspect]
     Indication: BLOOD CHOLESTEROL INCREASED
     Dosage: 1 DAILY PO TOOK 1 PILL DAILY
     Route: 048
     Dates: start: 20070521, end: 20070521

REACTIONS (7)
  - DISCOMFORT [None]
  - DRUG HYPERSENSITIVITY [None]
  - HEADACHE [None]
  - MUSCULAR WEAKNESS [None]
  - NASAL CONGESTION [None]
  - OEDEMA PERIPHERAL [None]
  - POOR QUALITY SLEEP [None]
